FAERS Safety Report 18939879 (Version 2)
Quarter: 2022Q3

REPORT INFORMATION
  Report Type: Report from Study
  Country: US (occurrence: US)
  Receive Date: 20210224
  Receipt Date: 20220803
  Transmission Date: 20221027
  Serious: Yes (Hospitalization, Other)
  Sender: FDA-Public Use
  Company Number: US-ABBVIE-21K-163-3781052-00

PATIENT
  Age: 64 Year
  Sex: Male
  Weight: 83.536 kg

DRUGS (5)
  1. CREON [Suspect]
     Active Substance: PANCRELIPASE AMYLASE\PANCRELIPASE LIPASE\PANCRELIPASE PROTEASE
     Indication: Pancreatitis
     Dosage: 2 CAPSULE PER MEAL
     Route: 048
     Dates: start: 2015
  2. CREON [Suspect]
     Active Substance: PANCRELIPASE AMYLASE\PANCRELIPASE LIPASE\PANCRELIPASE PROTEASE
     Dosage: 2 CAPSULES FOR BREAKFAST, 1 CAPSULE FOR LUNCH AND 2 CAPSULES FOR SUPPER,1 CAPSULE PER MEAL
     Route: 048
     Dates: start: 201908, end: 20200717
  3. CREON [Suspect]
     Active Substance: PANCRELIPASE AMYLASE\PANCRELIPASE LIPASE\PANCRELIPASE PROTEASE
     Dosage: 2 CAPSULES FOR BREAKFAST, 1 CAPSULE FOR LUNCH AND 2 CAPSULES FOR SUPPER
     Route: 048
     Dates: start: 20200801, end: 20201007
  4. CREON [Suspect]
     Active Substance: PANCRELIPASE AMYLASE\PANCRELIPASE LIPASE\PANCRELIPASE PROTEASE
     Dosage: 2 CAPSULES FOR BREAKFAST, 1 CAPSULE FOR LUNCH AND 2 CAPSULES FOR SUPPER
     Route: 048
     Dates: start: 20201022
  5. COVID 19 VACCINE [Concomitant]
     Indication: COVID-19 immunisation
     Dosage: MODERNA
     Route: 030
     Dates: start: 20210204, end: 20210204

REACTIONS (7)
  - Spinal fracture [Recovering/Resolving]
  - Spinal fracture [Recovering/Resolving]
  - Spinal fracture [Unknown]
  - Spinal deformity [Recovered/Resolved]
  - Fall [Recovering/Resolving]
  - Weight decreased [Recovering/Resolving]
  - Fall [Recovered/Resolved]

NARRATIVE: CASE EVENT DATE: 20180101
